FAERS Safety Report 14226297 (Version 1)
Quarter: 2017Q4

REPORT INFORMATION
  Report Type: Spontaneous
  Country: US (occurrence: US)
  Receive Date: 20171127
  Receipt Date: 20171127
  Transmission Date: 20180321
  Serious: No
  Sender: FDA-Public Use
  Company Number: US-SEPTODONT-201704089

PATIENT
  Sex: Male

DRUGS (1)
  1. CITANEST PLAIN [Suspect]
     Active Substance: PRILOCAINE HYDROCHLORIDE
     Indication: LOCAL ANAESTHESIA
     Dosage: MAXILLARY INFILTRATION
     Route: 004
     Dates: start: 20170515, end: 20170515

REACTIONS (3)
  - Swelling [Unknown]
  - Burning sensation [Unknown]
  - Oedema mouth [Unknown]

NARRATIVE: CASE EVENT DATE: 20170515
